FAERS Safety Report 21023008 (Version 13)
Quarter: 2023Q2

REPORT INFORMATION
  Report Type: Report from Study
  Country: CH (occurrence: None)
  Receive Date: 20220629
  Receipt Date: 20230410
  Transmission Date: 20230721
  Serious: Yes (Hospitalization)
  Sender: FDA-Public Use
  Company Number: CH-Eisai Medical Research-EC-2022-117892

PATIENT
  Age: 66 Year
  Sex: Male
  Weight: 74.1 kg

DRUGS (21)
  1. LENVATINIB [Suspect]
     Active Substance: LENVATINIB
     Indication: Malignant melanoma
     Dosage: STARTING AT 20 MG, FLUCTUATED DOSAGE
     Route: 048
     Dates: start: 20210830, end: 20211101
  2. LENVATINIB [Suspect]
     Active Substance: LENVATINIB
     Dosage: FLUCTUATED DOSAGE, STARTING DOSE AT 10 MG
     Route: 048
     Dates: start: 20211123, end: 20220510
  3. QUAVONLIMAB [Suspect]
     Active Substance: QUAVONLIMAB
     Indication: Malignant melanoma
     Dosage: QUAVONLIMAB (MK-1308)  25 MG (+) PEMBROLIZUMAB (MK-3475) 400 MG (1380A)
     Route: 042
     Dates: start: 20210830, end: 20221008
  4. PEMBROLIZUMAB [Suspect]
     Active Substance: PEMBROLIZUMAB
     Dosage: QUAVONLIMAB (MK-1308)  25 MG (+) PEMBROLIZUMAB (MK-3475) 400 MG (1380A)
     Route: 042
     Dates: start: 20211123, end: 20220620
  5. ASPIRIN [Concomitant]
     Active Substance: ASPIRIN
     Dates: start: 2000, end: 20220120
  6. GLUCOPHAGE [Concomitant]
     Active Substance: METFORMIN HYDROCHLORIDE
     Dates: start: 2000
  7. FLECTOR [Concomitant]
     Active Substance: DICLOFENAC EPOLAMINE
     Dates: start: 20211008
  8. BILASTINE [Concomitant]
     Active Substance: BILASTINE
     Dates: start: 20211018
  9. PRURI MED LIPOLOTION [Concomitant]
     Route: 061
     Dates: start: 20211018
  10. CLOBETASOL [Concomitant]
     Active Substance: CLOBETASOL
     Dates: start: 20211020
  11. HYDROCORTISONE [Concomitant]
     Active Substance: HYDROCORTISONE
     Dates: start: 20211021, end: 20211201
  12. LEVOTHYROXINE [Concomitant]
     Active Substance: LEVOTHYROXINE
     Dates: start: 20211021
  13. INSULIN NOS [Concomitant]
     Active Substance: INSULIN NOS
     Dates: start: 20211022, end: 20220511
  14. IMODIUM [Concomitant]
     Active Substance: LOPERAMIDE HYDROCHLORIDE
     Dates: start: 20211022
  15. AMPHOTERICIN B [Concomitant]
     Active Substance: AMPHOTERICIN B
     Dates: start: 20211023, end: 20220120
  16. CLOBETASOL PROPIONATE [Concomitant]
     Active Substance: CLOBETASOL PROPIONATE
     Dates: start: 20211026, end: 20220120
  17. MAGNESIUM [Concomitant]
     Active Substance: MAGNESIUM
     Dates: start: 2019
  18. EZETIMIBE [Concomitant]
     Active Substance: EZETIMIBE
     Dates: start: 20210603
  19. ATORVASTATIN [Concomitant]
     Active Substance: ATORVASTATIN
     Dates: start: 20210603
  20. FRAGMIN [Concomitant]
     Active Substance: DALTEPARIN SODIUM
     Route: 058
     Dates: start: 20211023, end: 20211027
  21. ST. JOHN^S WORT [Concomitant]
     Active Substance: ST. JOHN^S WORT
     Dates: start: 2000

REACTIONS (1)
  - Anaemia [Not Recovered/Not Resolved]

NARRATIVE: CASE EVENT DATE: 20211104
